FAERS Safety Report 20530330 (Version 2)
Quarter: 2022Q4

REPORT INFORMATION
  Report Type: Spontaneous
  Country: US (occurrence: US)
  Receive Date: 20220301
  Receipt Date: 20221201
  Transmission Date: 20230113
  Serious: Yes (Other)
  Sender: FDA-Public Use
  Company Number: US-BoehringerIngelheim-2022-BI-155352

PATIENT
  Age: 43 Year
  Sex: Male

DRUGS (7)
  1. AFATINIB [Suspect]
     Active Substance: AFATINIB
     Indication: Lung adenocarcinoma stage IV
  2. AFATINIB [Suspect]
     Active Substance: AFATINIB
     Indication: EGFR gene mutation
  3. ERLOTINIB [Suspect]
     Active Substance: ERLOTINIB
     Indication: Lung adenocarcinoma stage IV
     Dosage: ROUTE: SYSTEMIC
  4. ERLOTINIB [Suspect]
     Active Substance: ERLOTINIB
     Indication: EGFR gene mutation
  5. OSIMERTINIB [Suspect]
     Active Substance: OSIMERTINIB
     Indication: Lung adenocarcinoma stage IV
  6. OSIMERTINIB [Suspect]
     Active Substance: OSIMERTINIB
     Indication: EGFR gene mutation
  7. NECITUMUMAB [Concomitant]
     Active Substance: NECITUMUMAB
     Indication: EGFR gene mutation

REACTIONS (2)
  - Ventricular tachycardia [Recovered/Resolved]
  - Ventricular arrhythmia [Unknown]
